FAERS Safety Report 13070688 (Version 3)
Quarter: 2017Q3

REPORT INFORMATION
  Report Type: Spontaneous
  Country: ES (occurrence: ES)
  Receive Date: 20161229
  Receipt Date: 20170720
  Transmission Date: 20171127
  Serious: Yes (Death, Life-Threatening, Hospitalization)
  Sender: FDA-Public Use
  Company Number: ES-INCYTE CORPORATION-2016IN008271

PATIENT

DRUGS (6)
  1. DEFERASIROX [Suspect]
     Active Substance: DEFERASIROX
     Indication: PRODUCT USED FOR UNKNOWN INDICATION
     Dosage: 500 MG, QOD
     Route: 048
     Dates: start: 20160420
  2. JAKAVI [Suspect]
     Active Substance: RUXOLITINIB
     Indication: MYELOFIBROSIS
     Dosage: 20 MG, Q12H
     Route: 048
     Dates: start: 20160127
  3. ANAGRELIDE. [Suspect]
     Active Substance: ANAGRELIDE HYDROCHLORIDE
     Indication: PRODUCT USED FOR UNKNOWN INDICATION
     Dosage: 0.5 MG, QD
     Route: 048
     Dates: start: 20100113
  4. TALIDOMIDA [Suspect]
     Active Substance: THALIDOMIDE
     Indication: PRODUCT USED FOR UNKNOWN INDICATION
     Dosage: 50 MG, BID (48 HOUR)
     Route: 048
     Dates: start: 20150227
  5. EPOETIN BETA [Suspect]
     Active Substance: ERYTHROPOIETIN
     Indication: PRODUCT USED FOR UNKNOWN INDICATION
     Dosage: 30000 U, BIW
     Route: 058
     Dates: start: 20100113
  6. ACFOL [Suspect]
     Active Substance: FOLIC ACID
     Indication: PRODUCT USED FOR UNKNOWN INDICATION
     Dosage: 5 MG, QD
     Route: 048
     Dates: start: 20150417

REACTIONS (5)
  - Aplasia [Fatal]
  - Acute myeloid leukaemia [Unknown]
  - Intestinal perforation [Fatal]
  - Septic shock [Fatal]
  - Acute abdomen [Unknown]

NARRATIVE: CASE EVENT DATE: 20160420
